FAERS Safety Report 24621010 (Version 1)
Quarter: 2024Q4

REPORT INFORMATION
  Report Type: Report from Study
  Country: US (occurrence: US)
  Receive Date: 20241114
  Receipt Date: 20241114
  Transmission Date: 20250115
  Serious: Yes (Hospitalization, Other)
  Sender: ALEXION PHARMACEUTICALS
  Company Number: US-AstraZeneca-CH-00740345A

PATIENT
  Weight: 68.93 kg

DRUGS (8)
  1. CAPIVASERTIB [Suspect]
     Active Substance: CAPIVASERTIB
     Indication: Breast cancer female
     Dosage: 200 MILLIGRAM, BID
  2. CAPIVASERTIB [Suspect]
     Active Substance: CAPIVASERTIB
     Dosage: 200 MILLIGRAM, BID
  3. CAPIVASERTIB [Suspect]
     Active Substance: CAPIVASERTIB
     Dosage: 200 MILLIGRAM, BID
  4. CAPIVASERTIB [Suspect]
     Active Substance: CAPIVASERTIB
     Dosage: 200 MILLIGRAM, BID
  5. CAPIVASERTIB [Suspect]
     Active Substance: CAPIVASERTIB
     Dosage: 160 MILLIGRAM, BID
  6. CAPIVASERTIB [Suspect]
     Active Substance: CAPIVASERTIB
     Dosage: 160 MILLIGRAM, BID
  7. CAPIVASERTIB [Suspect]
     Active Substance: CAPIVASERTIB
     Dosage: 160 MILLIGRAM, BID
  8. CAPIVASERTIB [Suspect]
     Active Substance: CAPIVASERTIB
     Dosage: 160 MILLIGRAM, BID

REACTIONS (5)
  - Nausea [Unknown]
  - Atrial fibrillation [Unknown]
  - Blood glucose increased [Unknown]
  - Vomiting [Unknown]
  - Renal impairment [Unknown]
